FAERS Safety Report 11535306 (Version 1)
Quarter: 2015Q3

REPORT INFORMATION
  Report Type: Spontaneous
  Country: US (occurrence: US)
  Receive Date: 20150922
  Receipt Date: 20150922
  Transmission Date: 20151125
  Serious: No
  Sender: FDA-Public Use
  Company Number: US-ASTRAZENECA-2015SE89045

PATIENT
  Sex: Male
  Weight: 99.8 kg

DRUGS (3)
  1. SYMBICORT [Suspect]
     Active Substance: BUDESONIDE\FORMOTEROL FUMARATE DIHYDRATE
     Indication: ASTHMA
     Dosage: 160 / 4.5 MCG, AS ONE PUFF IN THE MORNING AND ONE PUFF IN THE EVENING
     Route: 055
  2. VENTOLIN [Concomitant]
     Active Substance: ALBUTEROL SULFATE
     Indication: PROPHYLAXIS
     Dosage: AS REQUIRED
     Route: 055
     Dates: start: 201405
  3. SYMBICORT [Suspect]
     Active Substance: BUDESONIDE\FORMOTEROL FUMARATE DIHYDRATE
     Indication: ASTHMA
     Dosage: UNKNOWN
     Route: 055

REACTIONS (5)
  - Asthma [Unknown]
  - Product quality issue [Unknown]
  - Intentional product misuse [Unknown]
  - Chest discomfort [Unknown]
  - Off label use [Unknown]
